FAERS Safety Report 6576938-6 (Version None)
Quarter: 2010Q1

REPORT INFORMATION
  Report Type: 
  Country: None (occurrence: None)
  Receive Date: 20100210
  Receipt Date: 20100204
  Transmission Date: 20100710
  Serious: Yes (Hospitalization)
  Sender: FDA-Public Use
  Company Number: US-PERRIGO-10US006891

PATIENT
  Sex: Male
  Weight: 63.492 kg

DRUGS (5)
  1. TUSSIN DM LIQ 359 [Suspect]
     Indication: COUGH
     Dosage: 10 ML, QD
     Route: 048
     Dates: start: 20100131, end: 20100202
  2. TOPROL-XL [Concomitant]
     Indication: ATRIAL FIBRILLATION
     Dosage: UNK
     Route: 065
  3. WARFARIN SODIUM [Concomitant]
     Indication: ATRIAL FIBRILLATION
     Dosage: UNK
     Route: 065
  4. LIPITOR [Concomitant]
     Indication: BLOOD CHOLESTEROL INCREASED
     Dosage: UNK
     Route: 065
  5. ALLOPURINOL [Concomitant]
     Indication: GOUT
     Dosage: UNK
     Route: 065

REACTIONS (1)
  - CONDITION AGGRAVATED [None]
